FAERS Safety Report 8832569 (Version 1)
Quarter: 2012Q4

REPORT INFORMATION
  Report Type: Spontaneous
  Country: US (occurrence: None)
  Receive Date: 20121009
  Receipt Date: 20121009
  Transmission Date: 20130627
  Serious: No
  Sender: FDA-Public Use
  Company Number: None

PATIENT
  Sex: Male

DRUGS (3)
  1. PEGASYS [Suspect]
     Indication: HEPATITIS C
     Route: 058
     Dates: start: 20120810, end: 201209
  2. RIBASPHERE [Suspect]
     Dosage: 100 mg q AM + 100 mg q pm oral
     Route: 048
     Dates: start: 20120810, end: 201209
  3. INCIVEK [Suspect]
     Indication: HEPATITIS C
     Dosage: 150 TID oral
     Route: 048
     Dates: start: 20120810, end: 201209

REACTIONS (1)
  - Treatment failure [None]
